FAERS Safety Report 8090831 (Version 3)
Quarter: 2012Q4

REPORT INFORMATION
  Report Type: 
  Country: FR (occurrence: FR)
  Receive Date: 20110815
  Receipt Date: 20121218
  Transmission Date: 20130627
  Serious: Yes (Other)
  Sender: FDA-Public Use
  Company Number: FR-MERCK-1108USA01294

PATIENT

DRUGS (18)
  1. JANUVIA [Suspect]
     Indication: TYPE 2 DIABETES MELLITUS
     Dosage: 100 mg, qd
     Route: 048
     Dates: start: 20100422, end: 20110518
  2. MONOALGIC [Suspect]
     Dosage: 200 mg, qd
     Route: 048
     Dates: start: 20100603, end: 20110403
  3. GLUCOVANCE [Suspect]
     Dosage: 1000/10
     Route: 048
     Dates: end: 20110412
  4. INIPOMP [Suspect]
     Dosage: 20 mg, qd
     Route: 048
     Dates: end: 20110412
  5. ZESTRIL [Concomitant]
     Dosage: 20 mg, qd
     Route: 048
     Dates: start: 20110412
  6. LOVENOX [Concomitant]
     Dosage: 4000 IU, qd
     Route: 058
     Dates: start: 20110404
  7. GLUCOPHAGE [Concomitant]
     Dosage: 1 g, bid
     Route: 048
     Dates: start: 20110412
  8. AMAREL [Concomitant]
     Dosage: 3 mg, qd
     Route: 048
     Dates: start: 20110412
  9. KARDEGIC [Suspect]
     Dosage: 75 mg, qd
     Route: 048
     Dates: end: 20110403
  10. MODOPAR [Suspect]
     Dosage: 50-12.5
     Route: 048
  11. LEVOTHYROX [Suspect]
     Dosage: 62.5 ?g, qd
     Route: 048
  12. ZESTORETIC [Suspect]
     Dosage: 20/12.5
     Route: 048
     Dates: end: 20110411
  13. BACTRIM [Concomitant]
     Dosage: 1 DF, bid
     Route: 048
     Dates: start: 20110409, end: 20110416
  14. ATARAX (HYDROXYZINE HYDROCHLORIDE) [Concomitant]
     Dosage: 50 mg, qd
     Route: 048
     Dates: start: 20110413, end: 20110417
  15. PROZAC [Concomitant]
     Dosage: 20 mg, qd
     Route: 048
     Dates: start: 20110407, end: 20110412
  16. XATRAL [Concomitant]
     Dosage: 10 mg, qd
     Route: 048
     Dates: start: 20110409
  17. FLUDEX [Concomitant]
     Dosage: 1.5 mg, qd
     Route: 048
     Dates: start: 20110428
  18. NEXIUM [Concomitant]
     Dosage: 20 mg, qd
     Route: 048
     Dates: start: 20110403

REACTIONS (2)
  - Pancreatitis chronic [Not Recovered/Not Resolved]
  - Haematoma [None]
